FAERS Safety Report 7893388-0 (Version None)
Quarter: 2011Q4

REPORT INFORMATION
  Report Type: 
  Country: None (occurrence: None)
  Receive Date: 20111104
  Receipt Date: 20111102
  Transmission Date: 20120403
  Serious: Yes (Other)
  Sender: FDA-Public Use
  Company Number: CN-PFIZER INC-2011261902

PATIENT
  Age: 52 Year

DRUGS (1)
  1. AROMASIN [Suspect]
     Dosage: UNK

REACTIONS (5)
  - DYSPEPSIA [None]
  - HEPATOMEGALY [None]
  - ALANINE AMINOTRANSFERASE INCREASED [None]
  - ASPARTATE AMINOTRANSFERASE INCREASED [None]
  - ABDOMINAL DISTENSION [None]
